FAERS Safety Report 5320327-9 (Version None)
Quarter: 2007Q2

REPORT INFORMATION
  Report Type: 
  Country: None (occurrence: None)
  Receive Date: 20070509
  Receipt Date: 20070427
  Transmission Date: 20071010
  Serious: Yes (Hospitalization)
  Sender: FDA-Public Use
  Company Number: BEWYE708909JUN06

PATIENT
  Age: 43 Year
  Sex: Male
  Weight: 78 kg

DRUGS (6)
  1. SIROLIMUS [Suspect]
     Indication: PROPHYLAXIS AGAINST TRANSPLANT REJECTION
     Route: 048
     Dates: start: 20041018, end: 20041118
  2. SIROLIMUS [Suspect]
     Route: 048
     Dates: start: 20041019, end: 20041027
  3. SIROLIMUS [Suspect]
     Route: 048
     Dates: start: 20041029, end: 20041112
  4. SIROLIMUS [Suspect]
     Route: 048
     Dates: start: 20041113, end: 20041129
  5. DACLIZUMAB [Concomitant]
     Indication: PROPHYLAXIS AGAINST TRANSPLANT REJECTION
     Dosage: 2 X 100 MG
  6. TACROLIMUS [Concomitant]
     Indication: PROPHYLAXIS AGAINST TRANSPLANT REJECTION

REACTIONS (3)
  - DISEASE RECURRENCE [None]
  - FOCAL GLOMERULOSCLEROSIS [None]
  - TRANSPLANT REJECTION [None]
